FAERS Safety Report 10337249 (Version 1)
Quarter: 2014Q3

REPORT INFORMATION
  Report Type: Spontaneous
  Country: TW (occurrence: TW)
  Receive Date: 20140723
  Receipt Date: 20140723
  Transmission Date: 20150326
  Serious: Yes (Other)
  Sender: FDA-Public Use
  Company Number: TW-MYLANLABS-2014S1016747

PATIENT
  Age: 29 Year
  Sex: Male

DRUGS (11)
  1. ZOLPIDEM [Suspect]
     Active Substance: ZOLPIDEM\ZOLPIDEM TARTRATE
     Indication: DRUG TOLERANCE
     Dosage: MIXTURE OF CRUSHED 10MG IN NORMAL SALINE
     Route: 042
  2. DULOXETINE [Concomitant]
     Active Substance: DULOXETINE
     Dosage: 60MG PER DAY
     Route: 065
  3. ZOLPIDEM [Suspect]
     Active Substance: ZOLPIDEM\ZOLPIDEM TARTRATE
     Indication: DRUG TOLERANCE
     Dosage: 40MG PER DAY
     Route: 065
  4. FLUNITRAZEPAM [Concomitant]
     Active Substance: FLUNITRAZEPAM
     Route: 065
  5. ZOLPIDEM [Suspect]
     Active Substance: ZOLPIDEM\ZOLPIDEM TARTRATE
     Indication: DRUG ABUSE
     Dosage: 30MG DAILY
     Route: 065
  6. ZOLPIDEM [Suspect]
     Active Substance: ZOLPIDEM\ZOLPIDEM TARTRATE
     Indication: DRUG ABUSE
     Dosage: MIXTURE OF CRUSHED 10MG IN NORMAL SALINE
     Route: 042
  7. ZOLPIDEM [Suspect]
     Active Substance: ZOLPIDEM\ZOLPIDEM TARTRATE
     Indication: OFF LABEL USE
     Dosage: 40MG PER DAY
     Route: 065
  8. ZOLPIDEM [Suspect]
     Active Substance: ZOLPIDEM\ZOLPIDEM TARTRATE
     Indication: OFF LABEL USE
     Dosage: 30MG DAILY
     Route: 065
  9. ZOLPIDEM [Suspect]
     Active Substance: ZOLPIDEM\ZOLPIDEM TARTRATE
     Indication: DRUG ABUSE
     Dosage: 40MG PER DAY
     Route: 065
  10. ZOLPIDEM [Suspect]
     Active Substance: ZOLPIDEM\ZOLPIDEM TARTRATE
     Indication: DRUG TOLERANCE
     Dosage: 30MG DAILY
     Route: 065
  11. ZOLPIDEM [Suspect]
     Active Substance: ZOLPIDEM\ZOLPIDEM TARTRATE
     Indication: OFF LABEL USE
     Dosage: MIXTURE OF CRUSHED 10MG IN NORMAL SALINE
     Route: 042

REACTIONS (7)
  - Confusional state [Unknown]
  - Anxiety [Unknown]
  - Thrombophlebitis [Recovering/Resolving]
  - Communication disorder [Unknown]
  - Drug tolerance [Unknown]
  - Mood altered [Unknown]
  - Drug abuse [Unknown]
